FAERS Safety Report 6218786-2 (Version None)
Quarter: 2009Q2

REPORT INFORMATION
  Report Type: 
  Country: None (occurrence: None)
  Receive Date: 20090608
  Receipt Date: 20090603
  Transmission Date: 20091009
  Serious: Yes (Other)
  Sender: FDA-Public Use
  Company Number: GB-BRISTOL-MYERS SQUIBB COMPANY-14320352

PATIENT
  Age: 35 Year
  Sex: Female
  Weight: 71 kg

DRUGS (2)
  1. IRBESARTAN [Suspect]
     Indication: HYPERTENSION
     Dosage: 18JUL08-07SEP08.
     Dates: start: 20080718, end: 20080907
  2. LEVOTHYROXINE SODIUM [Concomitant]
     Indication: HYPOTHYROIDISM
     Route: 048
     Dates: start: 20080528

REACTIONS (2)
  - ABORTION SPONTANEOUS [None]
  - PREGNANCY [None]
